FAERS Safety Report 23123664 (Version 1)
Quarter: 2023Q4

REPORT INFORMATION
  Report Type: Spontaneous
  Country: US (occurrence: US)
  Receive Date: 20231030
  Receipt Date: 20231030
  Transmission Date: 20240110
  Serious: Yes (Other)
  Sender: FDA-Public Use
  Company Number: US-LEADINGPHARMA-US-2023LEASPO00307

PATIENT
  Age: 67 Year
  Sex: Male

DRUGS (2)
  1. NIFEDIPINE [Suspect]
     Active Substance: NIFEDIPINE
     Indication: Product used for unknown indication
     Route: 065
  2. XTANDI [Suspect]
     Active Substance: ENZALUTAMIDE
     Indication: Product used for unknown indication
     Route: 065
     Dates: start: 202210

REACTIONS (5)
  - Renal failure [Unknown]
  - Hot flush [Unknown]
  - Skin discolouration [Unknown]
  - Swelling [Unknown]
  - Drug interaction [Unknown]

NARRATIVE: CASE EVENT DATE: 20230719
